FAERS Safety Report 5177902-4 (Version None)
Quarter: 2006Q4

REPORT INFORMATION
  Report Type: 
  Country: None (occurrence: None)
  Receive Date: 20061218
  Receipt Date: 20060726
  Transmission Date: 20070319
  Serious: No
  Sender: FDA-Public Use
  Company Number: US-AMGEN-KDL187997

PATIENT
  Sex: Female

DRUGS (1)
  1. ENBREL [Suspect]
     Indication: RHEUMATOID ARTHRITIS
     Route: 058
     Dates: start: 20010101

REACTIONS (7)
  - ARTHRALGIA [None]
  - DRUG INEFFECTIVE [None]
  - EPISTAXIS [None]
  - GAIT DISTURBANCE [None]
  - HOT FLUSH [None]
  - NIGHT SWEATS [None]
  - PHARYNGOLARYNGEAL PAIN [None]
